FAERS Safety Report 9272386 (Version 2)
Quarter: 2013Q3

REPORT INFORMATION
  Report Type: Spontaneous
  Country: FR (occurrence: FR)
  Receive Date: 20130506
  Receipt Date: 20130721
  Transmission Date: 20140515
  Serious: Yes (Other)
  Sender: FDA-Public Use
  Company Number: PHHY2012FR064937

PATIENT
  Sex: Female

DRUGS (3)
  1. RITALINE [Suspect]
     Dosage: 2 DF, QD
     Route: 048
  2. EFFEXOR [Concomitant]
     Dosage: UNK UKN, UNK
     Route: 048
  3. MODIODAL [Concomitant]
     Dosage: UNK UKN, UNK
     Route: 048

REACTIONS (2)
  - Gestational diabetes [Unknown]
  - Maternal exposure during pregnancy [Unknown]
